FAERS Safety Report 13503606 (Version 1)
Quarter: 2017Q2

REPORT INFORMATION
  Report Type: Spontaneous
  Country: US (occurrence: US)
  Receive Date: 20170502
  Receipt Date: 20170502
  Transmission Date: 20170830
  Serious: Yes (Hospitalization)
  Sender: FDA-Public Use
  Company Number: None

PATIENT
  Age: 61 Year
  Sex: Female
  Weight: 95.5 kg

DRUGS (17)
  1. ACETAMINOPHEN-CODEINE [Concomitant]
     Active Substance: ACETAMINOPHEN\CODEINE PHOSPHATE
  2. CARVEDILOL. [Concomitant]
     Active Substance: CARVEDILOL
  3. CLONIDINE HCL [Concomitant]
     Active Substance: CLONIDINE HYDROCHLORIDE
  4. GABAPENTIN. [Concomitant]
     Active Substance: GABAPENTIN
  5. LANCETS [Concomitant]
     Active Substance: DEVICE
  6. ZEPATIER [Suspect]
     Active Substance: ELBASVIR\GRAZOPREVIR
     Indication: HEPATITIS C
     Dosage: 50/100 1X DAILY ORAL
     Route: 048
     Dates: start: 20161226, end: 20170320
  7. FUROSEMIDE. [Concomitant]
     Active Substance: FUROSEMIDE
  8. SERTRALINE [Concomitant]
     Active Substance: SERTRALINE HYDROCHLORIDE
  9. AMLODIPINE [Concomitant]
     Active Substance: AMLODIPINE BESYLATE
  10. C-FOLIC ACID [Concomitant]
  11. INSULIN DETEMIR [Concomitant]
     Active Substance: INSULIN DETEMIR
  12. ALBUTEROL. [Concomitant]
     Active Substance: ALBUTEROL
  13. NIFEDIPINE. [Concomitant]
     Active Substance: NIFEDIPINE
  14. B COMPLEX-VITAMIN [Concomitant]
  15. INSULIN ASPART [Concomitant]
     Active Substance: INSULIN ASPART
  16. INSULIN LISPRO [Concomitant]
     Active Substance: INSULIN LISPRO
  17. MECLIZINE [Concomitant]
     Active Substance: MECLIZINE HYDROCHLORIDE

REACTIONS (1)
  - Arteriovenous fistula thrombosis [None]

NARRATIVE: CASE EVENT DATE: 20170331
